FAERS Safety Report 16108238 (Version 2)
Quarter: 2019Q2

REPORT INFORMATION
  Report Type: Report from Study
  Country: GB (occurrence: GB)
  Receive Date: 20190322
  Receipt Date: 20190604
  Transmission Date: 20190711
  Serious: Yes (Life-Threatening, Hospitalization)
  Sender: FDA-Public Use
  Company Number: GB-TAKEDA-2019TUS016125

PATIENT
  Age: 63 Year
  Sex: Female

DRUGS (6)
  1. BRIGATINIB [Suspect]
     Active Substance: BRIGATINIB
     Indication: ANAPLASTIC LYMPHOMA KINASE GENE MUTATION
     Dosage: 180 MILLIGRAM, QD
     Route: 048
     Dates: start: 20181031
  2. GABAPENTIN. [Concomitant]
     Active Substance: GABAPENTIN
     Dosage: 2400 MILLIGRAM, QD
     Route: 048
  3. MACROGOL [Concomitant]
     Active Substance: POLYETHYLENE GLYCOLS
     Dosage: UNK
     Route: 048
  4. BRIGATINIB [Suspect]
     Active Substance: BRIGATINIB
     Indication: NON-SMALL CELL LUNG CANCER STAGE IV
     Dosage: UNK
     Route: 048
     Dates: start: 20181102, end: 20181104
  5. DOCUSATE [Concomitant]
     Active Substance: DOCUSATE
     Dosage: 400 MILLIGRAM, QD
     Route: 048
  6. PREDNISOLONE. [Concomitant]
     Active Substance: PREDNISOLONE
     Dosage: 40 MILLIGRAM, QD
     Route: 048

REACTIONS (1)
  - Pneumonitis [Recovering/Resolving]

NARRATIVE: CASE EVENT DATE: 20181105
